FAERS Safety Report 14007405 (Version 1)
Quarter: 2017Q3

REPORT INFORMATION
  Report Type: Spontaneous
  Country: US (occurrence: None)
  Receive Date: 20170922
  Receipt Date: 20170922
  Transmission Date: 20171128
  Serious: Yes (Other)
  Sender: FDA-Public Use
  Company Number: None

PATIENT
  Age: 27 Year
  Sex: Female
  Weight: 65.77 kg

DRUGS (1)
  1. GENERIC CHEWABLE PHENYTOIN [Suspect]
     Active Substance: PHENYTOIN
     Indication: SEIZURE
     Dates: start: 1995

REACTIONS (2)
  - Condition aggravated [None]
  - Seizure [None]

NARRATIVE: CASE EVENT DATE: 1995
